FAERS Safety Report 6297799-9 (Version None)
Quarter: 2009Q3

REPORT INFORMATION
  Report Type: 
  Country: None (occurrence: None)
  Receive Date: 20090804
  Receipt Date: 20090804
  Transmission Date: 20100115
  Serious: Yes (Other)
  Sender: FDA-Public Use
  Company Number: None

PATIENT
  Age: 31 Year
  Sex: Female
  Weight: 77.1115 kg

DRUGS (1)
  1. SERTRALINE HCL [Suspect]
     Indication: BIPOLAR DISORDER
     Dosage: -CHANGED FROM 50MG TO 100MG- DAILY PO
     Route: 048
     Dates: start: 20080910, end: 20080930

REACTIONS (3)
  - DRUG EFFECT DECREASED [None]
  - IMPAIRED WORK ABILITY [None]
  - PRODUCT SUBSTITUTION ISSUE [None]
